FAERS Safety Report 8835283 (Version 1)
Quarter: 2012Q4

REPORT INFORMATION
  Report Type: 
  Country: JP (occurrence: JP)
  Receive Date: 20121011
  Receipt Date: 20121011
  Transmission Date: 20130627
  Serious: Yes (Other)
  Sender: FDA-Public Use
  Company Number: JP-B.I. PHARMACEUTICALS,INC./RIDGEFIELD-2012-BP-24598NB

PATIENT
  Age: 72 Year
  Sex: Female
  Weight: 35 kg

DRUGS (5)
  1. PRAZAXA [Suspect]
     Indication: ATRIAL FIBRILLATION
     Dosage: 220 mg
     Route: 048
     Dates: start: 20120924, end: 20120927
  2. TAKEPRON [Concomitant]
     Dosage: NR
     Route: 065
  3. VASOLAN [Concomitant]
     Route: 065
  4. ARTIST [Concomitant]
     Route: 065
  5. ALLOID G [Concomitant]
     Route: 065

REACTIONS (1)
  - Oesophagitis [Not Recovered/Not Resolved]
